FAERS Safety Report 5293109-4 (Version None)
Quarter: 2007Q2

REPORT INFORMATION
  Report Type: 
  Country: None (occurrence: None)
  Receive Date: 20070411
  Receipt Date: 20070402
  Transmission Date: 20071010
  Serious: Yes (Hospitalization)
  Sender: FDA-Public Use
  Company Number: US-BAYER-200710362BWH

PATIENT
  Age: 41 Year
  Sex: Female
  Weight: 73 kg

DRUGS (9)
  1. AVELOX [Suspect]
     Indication: BRONCHITIS
     Route: 048
  2. SOMA [Concomitant]
  3. DERMADEX [Concomitant]
  4. TOPAMAX [Concomitant]
  5. VALIUM [Concomitant]
  6. ADVAIR DISKUS 100/50 [Concomitant]
     Route: 055
  7. FLONASE [Concomitant]
     Route: 045
  8. ALBUTEROL [Concomitant]
  9. LORTAB [Concomitant]

REACTIONS (1)
  - SERUM SICKNESS [None]
